FAERS Safety Report 5919101-1 (Version None)
Quarter: 2008Q4

REPORT INFORMATION
  Report Type: 
  Country: None (occurrence: None)
  Receive Date: 20081014
  Receipt Date: 20081014
  Transmission Date: 20090506
  Serious: Yes (Other)
  Sender: FDA-Public Use
  Company Number: None

PATIENT
  Age: 3 Year
  Sex: Male
  Weight: 18.1439 kg

DRUGS (1)
  1. KEPPRA [Suspect]
     Indication: EPILEPSY
     Dosage: 3 ML 1 DAILY PO, 3 NIGHTS, 3 ML 2 DAILY PO
     Route: 048
     Dates: start: 20081010, end: 20081013

REACTIONS (3)
  - HALLUCINATION [None]
  - MUSCLE TWITCHING [None]
  - RASH PRURITIC [None]
